FAERS Safety Report 9286976 (Version 1)
Quarter: 2013Q2

REPORT INFORMATION
  Report Type: Spontaneous
  Country: IT (occurrence: None)
  Receive Date: 20130509
  Receipt Date: 20130509
  Transmission Date: 20140414
  Serious: Yes (Life-Threatening)
  Sender: FDA-Public Use
  Company Number: FK201301396

PATIENT
  Age: 34 Year
  Sex: Female

DRUGS (7)
  1. KETOROLAC TROMETHAMINE [Suspect]
     Indication: HEADACHE
  2. CABERGOLINE [Suspect]
     Indication: LACTATION INHIBITION THERAPY
  3. BETAMETHASONE [Concomitant]
  4. CHLORPHENAMINE [Concomitant]
  5. VERAPAMIL (VERAPAMIL) [Concomitant]
  6. RANITIDINE (RANITIDINE) [Concomitant]
  7. NITROGLYCERIN [Concomitant]

REACTIONS (6)
  - Kounis syndrome [None]
  - Pulmonary oedema [None]
  - Cardiac arrest [None]
  - Ventricular fibrillation [None]
  - Myocardial infarction [None]
  - Anaphylactic shock [None]
